FAERS Safety Report 6993765-6 (Version None)
Quarter: 2010Q3

REPORT INFORMATION
  Report Type: 
  Country: None (occurrence: None)
  Receive Date: 20100917
  Receipt Date: 20100311
  Transmission Date: 20110219
  Serious: No
  Sender: FDA-Public Use
  Company Number: US-ASTRAZENECA-2010SE10717

PATIENT
  Age: 58 Year
  Sex: Female
  Weight: 50.3 kg

DRUGS (5)
  1. SEROQUEL [Suspect]
     Indication: PSYCHOTIC DISORDER
     Route: 048
  2. SEROQUEL [Suspect]
     Indication: DEPRESSION
     Route: 048
  3. SEROQUEL [Suspect]
     Indication: SLEEP DISORDER
     Route: 048
  4. ATIVAN [Concomitant]
  5. ROZERON [Concomitant]

REACTIONS (11)
  - ALTERED STATE OF CONSCIOUSNESS [None]
  - AMNESIA [None]
  - CATARACT [None]
  - DRY EYE [None]
  - DYSARTHRIA [None]
  - DYSKINESIA [None]
  - FEELING DRUNK [None]
  - PERSONALITY CHANGE [None]
  - RESTLESS LEGS SYNDROME [None]
  - ROAD TRAFFIC ACCIDENT [None]
  - TARDIVE DYSKINESIA [None]
